FAERS Safety Report 25962271 (Version 1)
Quarter: 2025Q4

REPORT INFORMATION
  Report Type: Spontaneous
  Country: US (occurrence: None)
  Receive Date: 20251024
  Receipt Date: 20251024
  Transmission Date: 20260118
  Serious: Yes (Other)
  Sender: FDA-CTU
  Company Number: None

PATIENT
  Age: 22 Year
  Sex: Male
  Weight: 81.6 kg

DRUGS (1)
  1. KESIMPTA [Suspect]
     Active Substance: OFATUMUMAB
     Dosage: OTHER FREQUENCY : EVERY 7 DAYS;?
     Route: 058

REACTIONS (3)
  - Fatigue [None]
  - Malaise [None]
  - Decreased activity [None]

NARRATIVE: CASE EVENT DATE: 20251022
